FAERS Safety Report 24118162 (Version 1)
Quarter: 2024Q3

REPORT INFORMATION
  Report Type: Report from Study
  Country: RU (occurrence: None)
  Receive Date: 20240722
  Receipt Date: 20240722
  Transmission Date: 20241017
  Serious: Yes (Hospitalization, Other)
  Sender: ASTRAZENECA
  Company Number: 2019SF86592

PATIENT
  Age: 56 Year
  Sex: Female
  Weight: 78 kg

DRUGS (5)
  1. DAPAGLIFLOZIN [Suspect]
     Active Substance: DAPAGLIFLOZIN
     Indication: Type 2 diabetes mellitus
     Route: 048
     Dates: start: 2019
  2. GLYBURIDE\METFORMIN HYDROCHLORIDE [Concomitant]
     Active Substance: GLYBURIDE\METFORMIN HYDROCHLORIDE
  3. ENALAPRIL [Concomitant]
     Active Substance: ENALAPRIL
  4. INDOL FORTE [Concomitant]
  5. MASTOFIT [Concomitant]

REACTIONS (2)
  - Breast neoplasm [Unknown]
  - Psoriasis [Not Recovered/Not Resolved]

NARRATIVE: CASE EVENT DATE: 20190101
